FAERS Safety Report 21492335 (Version 2)
Quarter: 2022Q4

REPORT INFORMATION
  Report Type: Spontaneous
  Country: US (occurrence: None)
  Receive Date: 20221021
  Receipt Date: 20221027
  Transmission Date: 20230113
  Serious: Yes (Other)
  Sender: FDA-Public Use
  Company Number: US-ROCHE-3203937

PATIENT
  Age: 19 Year
  Sex: Male

DRUGS (3)
  1. HEMLIBRA [Suspect]
     Active Substance: EMICIZUMAB-KXWH
     Indication: Von Willebrand^s disease
     Dosage: WEEKLY EVERY 4 WEEKS THEN EVERY 2 WEEKS STARTING ON 5TH WEEK
     Route: 065
     Dates: start: 20210913
  2. GABAPENTIN [Concomitant]
     Active Substance: GABAPENTIN
  3. IMITREX [Concomitant]
     Active Substance: SUMATRIPTAN SUCCINATE

REACTIONS (3)
  - Nephrolithiasis [Recovered/Resolved]
  - Haemorrhage urinary tract [Recovered/Resolved]
  - Off label use [Unknown]

NARRATIVE: CASE EVENT DATE: 20220917
